FAERS Safety Report 7707225-8 (Version None)
Quarter: 2011Q3

REPORT INFORMATION
  Report Type: 
  Country: None (occurrence: None)
  Receive Date: 20110824
  Receipt Date: 20110812
  Transmission Date: 20111222
  Serious: Yes (Death)
  Sender: FDA-Public Use
  Company Number: PHHY2011IN75267

PATIENT
  Sex: Female

DRUGS (1)
  1. TASIGNA [Suspect]
     Dosage: 400 MG, BID

REACTIONS (3)
  - BLOOD COUNT ABNORMAL [None]
  - PLATELET COUNT DECREASED [None]
  - CARDIAC FAILURE [None]
